FAERS Safety Report 19765435 (Version 1)
Quarter: 2021Q3

REPORT INFORMATION
  Report Type: Spontaneous
  Country: CN (occurrence: CN)
  Receive Date: 20210830
  Receipt Date: 20210830
  Transmission Date: 20211014
  Serious: Yes (Hospitalization)
  Sender: FDA-Public Use
  Company Number: CN-PFIZER INC-202101058659

PATIENT
  Age: 61 Year
  Sex: Male
  Weight: 58 kg

DRUGS (3)
  1. SODIUM CHLORIDE. [Concomitant]
     Active Substance: SODIUM CHLORIDE
     Indication: VEHICLE SOLUTION USE
     Dosage: 100 ML, 3X/DAY
     Route: 041
     Dates: start: 20210804, end: 20210804
  2. TAZOCIN [Suspect]
     Active Substance: PIPERACILLIN SODIUM\TAZOBACTAM SODIUM
     Indication: PNEUMONIA
     Dosage: 4.5 G, 3X/DAY
     Route: 041
     Dates: start: 20210804, end: 20210804
  3. EUCALYPTOL LIMONENE PINENE [Concomitant]
     Indication: PNEUMONIA
     Dosage: 0.3 G, 3X/DAY
     Route: 048
     Dates: start: 20210804, end: 20210805

REACTIONS (5)
  - Oxygen saturation decreased [Recovering/Resolving]
  - Lip discolouration [Recovering/Resolving]
  - Flushing [Recovering/Resolving]
  - Tremor [Recovering/Resolving]
  - Rash [Recovering/Resolving]

NARRATIVE: CASE EVENT DATE: 20210804
